FAERS Safety Report 11631930 (Version 1)
Quarter: 2015Q4

REPORT INFORMATION
  Report Type: Spontaneous
  Country: US (occurrence: US)
  Receive Date: 20151015
  Receipt Date: 20151015
  Transmission Date: 20160304
  Serious: Yes (Hospitalization)
  Sender: FDA-Public Use
  Company Number: US-CIPLA LTD.-2015US07961

PATIENT

DRUGS (1)
  1. LAMOTRIGINE. [Suspect]
     Active Substance: LAMOTRIGINE
     Indication: TEMPORAL LOBE EPILEPSY
     Dosage: 275 MG, BID
     Route: 065

REACTIONS (9)
  - Vertigo [Recovered/Resolved]
  - Craniocerebral injury [Recovered/Resolved]
  - Electrocardiogram abnormal [Recovered/Resolved]
  - Ataxia [Unknown]
  - Altered state of consciousness [Recovered/Resolved]
  - Nystagmus [Recovered/Resolved]
  - Hyporeflexia [Recovered/Resolved]
  - Fall [Recovered/Resolved]
  - Nausea [Recovered/Resolved]
